FAERS Safety Report 9807809 (Version 2)
Quarter: 2014Q1

REPORT INFORMATION
  Report Type: Spontaneous
  Country: TR (occurrence: TR)
  Receive Date: 20140110
  Receipt Date: 20140110
  Transmission Date: 20141002
  Serious: Yes (Other)
  Sender: FDA-Public Use
  Company Number: TR-ABBVIE-13X-161-1139769-00

PATIENT
  Age: 35 Year
  Sex: Female

DRUGS (3)
  1. LEVOTHYROXINE SODIUM [Suspect]
     Indication: AUTOIMMUNE THYROIDITIS
     Route: 048
  2. LEVOTHYROXINE SODIUM [Suspect]
     Indication: HYPOTHYROIDISM
     Dosage: CUMMULATIVE DOSE 81.91 MICROG
  3. LEVOTHYROXINE SODIUM [Suspect]
     Route: 048

REACTIONS (2)
  - Type I hypersensitivity [Recovered/Resolved]
  - Drug hypersensitivity [Recovered/Resolved]
